FAERS Safety Report 16349911 (Version 1)
Quarter: 2019Q2

REPORT INFORMATION
  Report Type: Spontaneous
  Country: US (occurrence: US)
  Receive Date: 20190523
  Receipt Date: 20190523
  Transmission Date: 20190711
  Serious: Yes (Hospitalization, Other)
  Sender: FDA-Public Use
  Company Number: US-PFIZER INC-2019217468

PATIENT
  Age: 25 Year
  Sex: Female
  Weight: 104 kg

DRUGS (2)
  1. VANCOMYCIN HCL [Suspect]
     Active Substance: VANCOMYCIN HYDROCHLORIDE
     Indication: CLOSTRIDIUM DIFFICILE INFECTION
     Dosage: 125 MG, 4X/DAY
     Dates: start: 20190428, end: 20190507
  2. CLOMIPRAMINE [Interacting]
     Active Substance: CLOMIPRAMINE
     Indication: OBSESSIVE-COMPULSIVE DISORDER
     Dosage: 75 MG, DAILY
     Route: 048
     Dates: end: 201905

REACTIONS (12)
  - Withdrawal syndrome [Recovering/Resolving]
  - Dyskinesia [Unknown]
  - Muscle spasms [Unknown]
  - Mydriasis [Unknown]
  - Eating disorder [Unknown]
  - Blood pressure increased [Unknown]
  - Agitation [Unknown]
  - Tremor [Unknown]
  - Heart rate increased [Unknown]
  - Serotonin syndrome [Unknown]
  - Drug interaction [Recovering/Resolving]
  - Crying [Unknown]

NARRATIVE: CASE EVENT DATE: 201905
